FAERS Safety Report 24964781 (Version 1)
Quarter: 2025Q1

REPORT INFORMATION
  Report Type: Spontaneous
  Country: US (occurrence: None)
  Receive Date: 20250212
  Receipt Date: 20250212
  Transmission Date: 20250408
  Serious: No
  Sender: FDA-CTU
  Company Number: None

PATIENT
  Age: 72 Year
  Sex: Male
  Weight: 141.0 kg

DRUGS (2)
  1. AUGTYRO [Suspect]
     Active Substance: REPOTRECTINIB
     Indication: Lung neoplasm malignant
     Dosage: OTHER QUANTITY : 4 CAPSULES (160MG TOTAL);?FREQUENCY : DAILY;?
     Route: 048
     Dates: start: 20250129
  2. AUGTYRO [Suspect]
     Active Substance: REPOTRECTINIB
     Indication: Bronchitis

REACTIONS (2)
  - Dizziness [None]
  - Balance disorder [None]

NARRATIVE: CASE EVENT DATE: 20250212
